FAERS Safety Report 4717565-2 (Version None)
Quarter: 2005Q3

REPORT INFORMATION
  Report Type: 
  Country: None (occurrence: None)
  Receive Date: 20050719
  Receipt Date: 20021210
  Transmission Date: 20060218
  Serious: Yes (Death, Life-Threatening, Hospitalization)
  Sender: FDA-Public Use
  Company Number: JP-MERCK-0212USA01060

PATIENT
  Age: 57 Year
  Sex: Female
  Weight: 60 kg

DRUGS (12)
  1. PRIMAXIN [Suspect]
     Indication: PANCREATITIS
     Route: 065
     Dates: start: 20021123, end: 20021130
  2. PRIMAXIN [Suspect]
     Route: 042
     Dates: start: 20021201, end: 20021201
  3. PRIMAXIN [Suspect]
     Route: 042
     Dates: start: 20021202, end: 20021203
  4. PRIMAXIN [Suspect]
     Route: 042
     Dates: start: 20021204, end: 20021207
  5. PRIMAXIN [Suspect]
     Indication: PROPHYLAXIS
     Route: 065
     Dates: start: 20021123, end: 20021130
  6. PRIMAXIN [Suspect]
     Route: 042
     Dates: start: 20021201, end: 20021201
  7. PRIMAXIN [Suspect]
     Route: 042
     Dates: start: 20021202, end: 20021203
  8. PRIMAXIN [Suspect]
     Route: 042
     Dates: start: 20021204, end: 20021207
  9. NAFAMOSTAT MESYLATE [Suspect]
     Indication: PANCREATITIS
     Route: 042
     Dates: start: 20021123, end: 20021130
  10. NAFAMOSTAT MESYLATE [Suspect]
     Route: 042
     Dates: start: 20021201, end: 20021207
  11. NAFAMOSTAT MESYLATE [Suspect]
     Indication: DISSEMINATED INTRAVASCULAR COAGULATION
     Route: 042
     Dates: start: 20021123, end: 20021130
  12. NAFAMOSTAT MESYLATE [Suspect]
     Route: 042
     Dates: start: 20021201, end: 20021207

REACTIONS (13)
  - ABASIA [None]
  - ACUTE RESPIRATORY DISTRESS SYNDROME [None]
  - CHOLANGITIS ACUTE [None]
  - CHOLEDOCHAL CYST [None]
  - DEATH [None]
  - DISSEMINATED INTRAVASCULAR COAGULATION [None]
  - GALLBLADDER CANCER [None]
  - HEPATIC FAILURE [None]
  - METASTASES TO LYMPH NODES [None]
  - NEPHROGENIC DIABETES INSIPIDUS [None]
  - NEPHROPATHY [None]
  - PANCREATIC PSEUDOCYST [None]
  - RENAL TUBULAR NECROSIS [None]
